FAERS Safety Report 14028037 (Version 1)
Quarter: 2017Q3

REPORT INFORMATION
  Report Type: Spontaneous
  Country: US (occurrence: None)
  Receive Date: 20170930
  Receipt Date: 20170930
  Transmission Date: 20171128
  Serious: Yes (Life-Threatening, Hospitalization)
  Sender: FDA-Public Use
  Company Number: None

PATIENT
  Age: 71 Year
  Sex: Male

DRUGS (1)
  1. FLECAINIDE [Suspect]
     Active Substance: FLECAINIDE
     Indication: ATRIAL FIBRILLATION
     Route: 048
     Dates: start: 20170731, end: 20170820

REACTIONS (5)
  - Chest pain [None]
  - Electrocardiogram QT prolonged [None]
  - Dizziness [None]
  - Bradycardia [None]
  - Blood potassium decreased [None]

NARRATIVE: CASE EVENT DATE: 20170821
